FAERS Safety Report 6148331-1 (Version None)
Quarter: 2009Q2

REPORT INFORMATION
  Report Type: 
  Country: None (occurrence: None)
  Receive Date: 20090408
  Receipt Date: 20090331
  Transmission Date: 20091009
  Serious: Yes (Other)
  Sender: FDA-Public Use
  Company Number: US-JNJFOC-20090201874

PATIENT
  Sex: Male
  Weight: 88.91 kg

DRUGS (5)
  1. DOXIL [Suspect]
     Indication: LYMPHOMA
     Route: 042
  2. RITUXAN [Suspect]
     Indication: LYMPHOMA
     Route: 065
  3. VELCADE [Suspect]
     Indication: LYMPHOMA
     Route: 065
  4. FLONASE [Concomitant]
     Indication: DRUG USE FOR UNKNOWN INDICATION
     Route: 065
  5. ZOLOFT [Concomitant]
     Indication: DRUG USE FOR UNKNOWN INDICATION
     Route: 065

REACTIONS (2)
  - CELLULITIS [None]
  - MALAISE [None]
